FAERS Safety Report 25648134 (Version 1)
Quarter: 2025Q3

REPORT INFORMATION
  Report Type: Spontaneous
  Country: AU (occurrence: AU)
  Receive Date: 20250806
  Receipt Date: 20250806
  Transmission Date: 20251021
  Serious: Yes (Hospitalization, Other)
  Sender: DR REDDYS
  Company Number: AU-AUS-AUS/2025/07/011697

PATIENT
  Age: 39 Year
  Sex: Female

DRUGS (6)
  1. ONDANSETRON [Suspect]
     Active Substance: ONDANSETRON
     Indication: Product used for unknown indication
     Route: 030
  2. ELETRIPTAN [Suspect]
     Active Substance: ELETRIPTAN
     Indication: Product used for unknown indication
     Route: 065
  3. PROCHLORPERAZINE [Suspect]
     Active Substance: PROCHLORPERAZINE
     Indication: Product used for unknown indication
     Route: 065
  4. CARBIMAZOLE [Suspect]
     Active Substance: CARBIMAZOLE
     Indication: Product used for unknown indication
     Route: 065
  5. AMITRIPTYLINE [Suspect]
     Active Substance: AMITRIPTYLINE
     Indication: Product used for unknown indication
     Route: 065
  6. Estelle-35 ED [Concomitant]
     Indication: Product used for unknown indication
     Route: 065

REACTIONS (9)
  - Agitation [Unknown]
  - Hyperhidrosis [Unknown]
  - Hyperreflexia [Unknown]
  - Migraine [Recovering/Resolving]
  - Mydriasis [Unknown]
  - Sinus tachycardia [Unknown]
  - Urinary retention [Unknown]
  - Vertigo [Unknown]
  - Anticholinergic syndrome [Unknown]

NARRATIVE: CASE EVENT DATE: 20210305
